FAERS Safety Report 7664099 (Version 5)
Quarter: 2013Q1

REPORT INFORMATION
  Report Type: Report from Study
  Country: JP (occurrence: JP)
  Receive Date: 20101111
  Receipt Date: 20130125
  Transmission Date: 20140127
  Serious: Yes (Death, Life-Threatening, Hospitalization, Other)
  Sender: FDA-Public Use
  Company Number: JP-CELGENEUS-087-21880-10110864

PATIENT
  Age: 70 Year
  Sex: Female

DRUGS (7)
  1. REVLIMID [Suspect]
     Indication: PLASMA CELL MYELOMA
     Dosage: 25 MILLIGRAM
     Route: 048
     Dates: start: 20101012, end: 20101027
  2. LENADEX [Suspect]
     Indication: PLASMA CELL MYELOMA
     Dosage: 40 MILLIGRAM
     Route: 048
     Dates: start: 20101012, end: 20101015
  3. CRAVIT [Suspect]
     Indication: PROPHYLAXIS
     Dosage: 500 MILLIGRAM
     Route: 048
     Dates: start: 20101026, end: 20101030
  4. CRAVIT [Suspect]
     Indication: INFECTION
  5. MEROPEN [Suspect]
     Indication: INFECTION
     Dosage: 1 GRAM
     Route: 041
     Dates: start: 20101029, end: 20101031
  6. MEROPEN [Suspect]
     Indication: PYREXIA
  7. BAYASPIRIN [Concomitant]
     Indication: PROPHYLAXIS
     Dosage: 100 MILLIGRAM
     Route: 048
     Dates: start: 20101012, end: 20101027

REACTIONS (5)
  - Hepatic failure [Fatal]
  - Staphylococcal sepsis [Not Recovered/Not Resolved]
  - Neutrophil count decreased [Recovered/Resolved]
  - Platelet count decreased [Recovering/Resolving]
  - Pyrexia [Recovered/Resolved]
